FAERS Safety Report 9154213 (Version 2)
Quarter: 2013Q3

REPORT INFORMATION
  Report Type: Report from Study
  Country: DE (occurrence: DE)
  Receive Date: 20130311
  Receipt Date: 20130927
  Transmission Date: 20140515
  Serious: Yes (Hospitalization)
  Sender: FDA-Public Use
  Company Number: DE-BRISTOL-MYERS SQUIBB COMPANY-17328337

PATIENT
  Age: 58 Year
  Sex: Female
  Weight: 63 kg

DRUGS (13)
  1. PACLITAXEL [Suspect]
     Indication: BREAST CANCER
     Dosage: 28DEC12-ONG?RECENT DOSE:18FEB2013
     Route: 042
     Dates: start: 20121227
  2. BLINDED: PERTUZUMAB [Suspect]
     Indication: BREAST CANCER
     Dosage: RECENT DOSE:11FEB2013
     Route: 042
     Dates: start: 20121227
  3. TRASTUZUMAB [Suspect]
     Indication: BREAST CANCER
     Dosage: RECENT DOSE:11FEB2013?REDUCED TO 6MG/KG ONCE EVERY THREE WEEK
     Route: 042
     Dates: start: 20121227
  4. CYCLOPHOSPHAMIDE [Suspect]
     Indication: BREAST CANCER
     Dosage: LAST DOSE:6DEC12
     Route: 042
     Dates: start: 20121004
  5. EPIRUBICIN [Suspect]
     Indication: BREAST CANCER
     Dosage: LAST DOSE:6DEC12
     Route: 042
     Dates: start: 20121004
  6. BLINDED: PLACEBO [Suspect]
     Indication: BREAST CANCER
     Dosage: RECENT DOSE:11FEB13
     Route: 042
     Dates: start: 20121227
  7. DEXAMETHASONE [Concomitant]
     Dosage: 04OCT12-ONG?18FEB12-18FEB2012?18FEB12-ONG:4MG
     Dates: start: 20121004
  8. ESTRADIOL VALERATE [Concomitant]
     Dates: start: 20121004
  9. HYDROXYPROGESTERONE CAPROATE [Concomitant]
     Dates: start: 20121004
  10. EMEND [Concomitant]
     Dates: start: 20121004
  11. GRANISETRON [Concomitant]
     Dosage: DOSE:3MG,2MG?04OCT12-ONG?18FEB13-18FEB13?18FEB13-ONG
     Dates: start: 20121004
  12. TAVEGIL [Concomitant]
  13. CIMETIDINE [Concomitant]
     Dates: start: 20130218, end: 20130218

REACTIONS (3)
  - Hypersensitivity [Recovered/Resolved]
  - Upper respiratory tract infection [Recovered/Resolved]
  - Dyspnoea [Recovered/Resolved]
